FAERS Safety Report 6023632-6 (Version None)
Quarter: 2008Q4

REPORT INFORMATION
  Report Type: 
  Country: None (occurrence: None)
  Receive Date: 20081222
  Receipt Date: 20080904
  Transmission Date: 20090506
  Serious: No
  Sender: FDA-Public Use
  Company Number: SPV1-2008-01917

PATIENT
  Age: 41 Year
  Sex: Female
  Weight: 65.8 kg

DRUGS (2)
  1. VYVANSE [Suspect]
     Dosage: 40 MG, 1X/DAY:QD, ORAL ; 80 MG, 1X/DAY:QD, ORAL
     Route: 048
     Dates: start: 20080401, end: 20080801
  2. VYVANSE [Suspect]
     Dosage: 40 MG, 1X/DAY:QD, ORAL ; 80 MG, 1X/DAY:QD, ORAL
     Route: 048
     Dates: start: 20080801

REACTIONS (2)
  - DRUG INEFFECTIVE [None]
  - OVERDOSE [None]
